FAERS Safety Report 15575212 (Version 1)
Quarter: 2018Q4

REPORT INFORMATION
  Report Type: Spontaneous
  Country: IN (occurrence: IN)
  Receive Date: 20181101
  Receipt Date: 20181101
  Transmission Date: 20190205
  Serious: Yes (Death, Other)
  Sender: FDA-Public Use
  Company Number: IN-PFIZER INC-2018423258

PATIENT
  Age: 49 Year
  Sex: Male

DRUGS (1)
  1. CRIZALK [Suspect]
     Active Substance: CRIZOTINIB
     Indication: ALK GENE REARRANGEMENT ASSAY
     Dosage: 250 MG, TWICE A DAY
     Route: 048
     Dates: start: 20180131

REACTIONS (5)
  - Constipation [Unknown]
  - Back pain [Unknown]
  - Fall [Unknown]
  - Cerebral haemorrhage [Unknown]
  - Neoplasm progression [Fatal]

NARRATIVE: CASE EVENT DATE: 20180423
